FAERS Safety Report 8570234-3 (Version None)
Quarter: 2012Q3

REPORT INFORMATION
  Report Type: 
  Country: None (occurrence: None)
  Receive Date: 20120803
  Receipt Date: 20120727
  Transmission Date: 20120928
  Serious: Yes (Other)
  Sender: FDA-Public Use
  Company Number: JP-PFIZER INC-2012177996

PATIENT
  Age: 90 Year
  Sex: Female

DRUGS (3)
  1. LYRICA [Suspect]
     Dosage: UNK
     Dates: start: 20120401
  2. LOXONIN [Concomitant]
     Dosage: UNK
  3. VITAMIN B12 [Concomitant]
     Dosage: UNK

REACTIONS (2)
  - OEDEMA [None]
  - CARDIAC FAILURE [None]
